FAERS Safety Report 8861980 (Version 1)
Quarter: 2012Q4

REPORT INFORMATION
  Report Type: 
  Country: US (occurrence: US)
  Receive Date: 20121025
  Receipt Date: 20121025
  Transmission Date: 20130627
  Serious: Yes (Hospitalization)
  Sender: FDA-Public Use
  Company Number: US-SANOFI-AVENTIS-2011SA047352

PATIENT
  Age: 66 Year
  Sex: Female

DRUGS (9)
  1. LANTUS [Suspect]
     Indication: TYPE II DIABETES MELLITUS
     Dosage: Dose:60 unit(s)
     Route: 058
  2. INVESTIGATIONAL DRUG [Suspect]
     Indication: TYPE II DIABETES MELLITUS
     Route: 065
     Dates: start: 20101013, end: 20101023
  3. INVESTIGATIONAL DRUG [Suspect]
     Indication: TYPE II DIABETES MELLITUS
     Route: 065
     Dates: start: 20101210
  4. PLACEBO [Suspect]
     Indication: TYPE II DIABETES MELLITUS
     Route: 065
     Dates: start: 20101013, end: 20101023
  5. PLACEBO [Suspect]
     Indication: TYPE II DIABETES MELLITUS
     Route: 065
     Dates: start: 20101210
  6. NOVOLOG [Suspect]
     Indication: TYPE II DIABETES MELLITUS
     Dosage: Dose:25 unit(s)
     Route: 065
  7. CALCIUM CHANNEL BLOCKERS [Concomitant]
     Dates: start: 20101013
  8. ORGANIC NITRATES [Concomitant]
     Dates: start: 20101013
  9. NIACIN [Concomitant]

REACTIONS (3)
  - Cardiac failure congestive [Recovered/Resolved]
  - Oedema peripheral [Unknown]
  - Blood glucose increased [Unknown]
